FAERS Safety Report 7544638-1 (Version None)
Quarter: 2011Q2

REPORT INFORMATION
  Report Type: 
  Country: None (occurrence: None)
  Receive Date: 20110614
  Receipt Date: 20110606
  Transmission Date: 20111010
  Serious: No
  Sender: FDA-Public Use
  Company Number: US-BIOGENIDEC-2011BI006125

PATIENT
  Age: 55 Year
  Sex: Female

DRUGS (3)
  1. TYSABRI [Suspect]
     Indication: MULTIPLE SCLEROSIS
     Route: 042
     Dates: start: 20061130, end: 20110502
  2. TYSABRI [Suspect]
     Route: 042
     Dates: end: 20060928
  3. AVONEX [Concomitant]
     Indication: MULTIPLE SCLEROSIS
     Route: 030

REACTIONS (5)
  - COGNITIVE DISORDER [None]
  - MOUTH ULCERATION [None]
  - PHARYNGEAL ULCERATION [None]
  - FATIGUE [None]
  - DEPRESSION [None]
